FAERS Safety Report 5672690-7 (Version None)
Quarter: 2008Q1

REPORT INFORMATION
  Report Type: 
  Country: None (occurrence: None)
  Receive Date: 20080319
  Receipt Date: 20070305
  Transmission Date: 20080703
  Serious: No
  Sender: FDA-Public Use
  Company Number: US-KINGPHARMUSA00001-K200700256

PATIENT

DRUGS (11)
  1. ALTACE [Suspect]
     Indication: HYPERTENSION
     Dosage: UNK, UNK
     Route: 048
  2. ALTACE [Suspect]
     Dosage: 5 MG, QD
     Dates: end: 20070129
  3. PROSCAR [Concomitant]
  4. ANABOLIX SUPPLEMENT [Concomitant]
  5. CELEBREX [Concomitant]
  6. SYNTHROID [Concomitant]
  7. LORTAB [Concomitant]
  8. DOXYCYCLINE [Concomitant]
     Indication: ROSACEA
  9. CLONAZEPAM [Concomitant]
     Dosage: UNK, PRN
  10. AMBIEN [Concomitant]
     Dosage: UNK, PRN
  11. MULTIVITAMIN /00831701/ [Concomitant]

REACTIONS (2)
  - DRUG INEFFECTIVE [None]
  - FLUSHING [None]
